FAERS Safety Report 21727683 (Version 1)
Quarter: 2022Q4

REPORT INFORMATION
  Report Type: Spontaneous
  Country: US (occurrence: None)
  Receive Date: 20221213
  Receipt Date: 20221213
  Transmission Date: 20230113
  Serious: Yes (Other)
  Sender: FDA-Public Use
  Company Number: None

PATIENT
  Age: 37 Year
  Sex: Male
  Weight: 90.9 kg

DRUGS (8)
  1. CLARITHROMYCIN [Suspect]
     Active Substance: CLARITHROMYCIN
     Indication: Sinusitis
     Dosage: OTHER QUANTITY : 1 TABLET(S);?FREQUENCY : TWICE A DAY;?
     Route: 048
     Dates: start: 20221209
  2. TANDEM [Concomitant]
     Active Substance: FERROUS ASPARTO GLYCINATE\FERROUS FUMARATE
  3. Slim [Concomitant]
  4. DEVICE [Concomitant]
     Active Substance: DEVICE
  5. NOVOLOG [Concomitant]
     Active Substance: INSULIN ASPART
  6. PREDNISONE [Concomitant]
     Active Substance: PREDNISONE
  7. LEVOTHYROXINE [Concomitant]
     Active Substance: LEVOTHYROXINE
  8. Ginsing [Concomitant]

REACTIONS (3)
  - Hyperglycaemia [None]
  - Insulin resistance [None]
  - Hypoglycaemia [None]

NARRATIVE: CASE EVENT DATE: 20221212
